FAERS Safety Report 23415326 (Version 1)
Quarter: 2024Q1

REPORT INFORMATION
  Report Type: Spontaneous
  Country: TW (occurrence: TW)
  Receive Date: 20240118
  Receipt Date: 20240118
  Transmission Date: 20240409
  Serious: Yes (Hospitalization)
  Sender: FDA-Public Use
  Company Number: TW-ALKEM LABORATORIES LIMITED-TW-ALKEM-2024-00179

PATIENT
  Age: 21 Year
  Sex: Female

DRUGS (3)
  1. METFORMIN HYDROCHLORIDE [Suspect]
     Active Substance: METFORMIN HYDROCHLORIDE
     Indication: Polycystic ovarian syndrome
     Dosage: UNK
     Route: 065
  2. METFORMIN HYDROCHLORIDE [Suspect]
     Active Substance: METFORMIN HYDROCHLORIDE
     Dosage: 250 MG/DAY
     Route: 065
  3. DROSPIRENONE [Suspect]
     Active Substance: DROSPIRENONE
     Indication: Polycystic ovarian syndrome
     Dosage: 3 MG/DAY
     Route: 065

REACTIONS (1)
  - Psychotic disorder [Recovered/Resolved]
